FAERS Safety Report 18923052 (Version 2)
Quarter: 2021Q1

REPORT INFORMATION
  Report Type: Spontaneous
  Country: FR (occurrence: FR)
  Receive Date: 20210222
  Receipt Date: 20210224
  Transmission Date: 20210420
  Serious: Yes (Hospitalization, Other)
  Sender: FDA-Public Use
  Company Number: FR-PFIZER INC-2021145608

PATIENT
  Age: 50 Year
  Sex: Male

DRUGS (2)
  1. SILDENAFIL CITRATE. [Suspect]
     Active Substance: SILDENAFIL CITRATE
     Indication: SEXUAL ACTIVITY INCREASED
     Dosage: UNK (110 MG/CAPSULE)
     Route: 048
  2. TADALAFIL. [Suspect]
     Active Substance: TADALAFIL
     Indication: SEXUAL ACTIVITY INCREASED
     Dosage: UNK (14 MG/CAPSULE)
     Route: 048

REACTIONS (5)
  - Off label use [Recovered/Resolved]
  - Cerebral artery stenosis [Recovered/Resolved]
  - Hypotension [Recovered/Resolved]
  - Product use issue [Recovered/Resolved]
  - Ischaemic stroke [Recovered/Resolved]
